FAERS Safety Report 5781385-0 (Version None)
Quarter: 2008Q2

REPORT INFORMATION
  Report Type: 
  Country: None (occurrence: None)
  Receive Date: 20080610
  Receipt Date: 20080612
  Transmission Date: 20081010
  Serious: Yes (Death)
  Sender: FDA-Public Use
  Company Number: 163-21880-08010391

PATIENT
  Age: 82 Year
  Sex: Male

DRUGS (1)
  1. REVLIMID [Suspect]
     Indication: MULTIPLE MYELOMA
     Dosage: 25 MG, QOD, ORAL
     Route: 048
     Dates: start: 20070321, end: 20071031

REACTIONS (3)
  - CARDIAC DISORDER [None]
  - DISEASE PROGRESSION [None]
  - MULTIPLE MYELOMA [None]
